FAERS Safety Report 20109737 (Version 1)
Quarter: 2021Q4

REPORT INFORMATION
  Report Type: Spontaneous
  Country: US (occurrence: None)
  Receive Date: 20211124
  Receipt Date: 20211124
  Transmission Date: 20220303
  Serious: No
  Sender: FDA-Public Use
  Company Number: None

PATIENT
  Sex: Female

DRUGS (1)
  1. OTEZLA [Suspect]
     Active Substance: APREMILAST
     Indication: Psoriasis
     Dosage: FREQUENCY : TWICE A DAY;?
     Route: 048
     Dates: start: 20210609, end: 20211123

REACTIONS (6)
  - Abdominal distension [None]
  - Flatulence [None]
  - Diarrhoea [None]
  - Weight decreased [None]
  - Headache [None]
  - Nausea [None]
